FAERS Safety Report 8279154-5 (Version None)
Quarter: 2012Q2

REPORT INFORMATION
  Report Type: 
  Country: None (occurrence: None)
  Receive Date: 20120412
  Receipt Date: 20111215
  Transmission Date: 20120825
  Serious: No
  Sender: FDA-Public Use
  Company Number: US-ASTRAZENECA-2011SE76313

PATIENT
  Age: 42 Year
  Sex: Female

DRUGS (33)
  1. NEXIUM [Suspect]
     Indication: GASTROOESOPHAGEAL REFLUX DISEASE
     Route: 048
  2. VITAMIN D [Concomitant]
     Indication: VITAMIN SUPPLEMENTATION
  3. ALBUTEROL SULFATE [Concomitant]
     Indication: WHEEZING
  4. MIRALAX POWD [Concomitant]
  5. DIFLUCAN [Concomitant]
  6. CYCLOBENZAPRINE HCL [Concomitant]
  7. LEVEMIR [Concomitant]
  8. NOVOLOG [Concomitant]
  9. TRILIPIX [Concomitant]
     Indication: BLOOD TRIGLYCERIDES ABNORMAL
  10. TRILIPIX [Concomitant]
     Indication: BLOOD CHOLESTEROL ABNORMAL
  11. COMBIVENT AERO [Concomitant]
     Indication: DYSPNOEA
  12. COMBIVENT AERO [Concomitant]
     Indication: COUGH
  13. ALBUTEROL SULFATE [Concomitant]
     Indication: COUGH
  14. BIOFREEZE PUMP [Concomitant]
     Indication: PAIN IN EXTREMITY
  15. AMARYL [Concomitant]
  16. EQL ONE DAILY WOMAN [Concomitant]
  17. LORTAB [Concomitant]
  18. CYMBALTA [Concomitant]
  19. HIBICLENS [Concomitant]
  20. GLUCOPHAGE [Concomitant]
     Indication: DIABETES MELLITUS
  21. AMITRIPTYLINE HCL [Concomitant]
  22. CELEBREX [Concomitant]
     Indication: ARTHRITIS
  23. CELEBREX [Concomitant]
     Indication: PAIN
  24. BIOFREEZE PUMP [Concomitant]
     Indication: BACK PAIN
  25. LORATADINE [Concomitant]
     Indication: MULTIPLE ALLERGIES
  26. ABILIFY [Concomitant]
  27. LYRICA [Concomitant]
  28. XANAX [Concomitant]
  29. AMBIEN [Concomitant]
     Indication: INSOMNIA
  30. NYSTATIN [Concomitant]
     Indication: RASH
  31. ACTOS [Concomitant]
  32. MIRAPEX [Concomitant]
     Indication: RESTLESS LEGS SYNDROME
  33. SIMVASTATIN [Concomitant]
     Indication: BLOOD CHOLESTEROL ABNORMAL

REACTIONS (6)
  - ARTHRITIS [None]
  - COUGH [None]
  - RESTLESS LEGS SYNDROME [None]
  - PAIN [None]
  - INSOMNIA [None]
  - DYSPNOEA [None]
